FAERS Safety Report 22636500 (Version 2)
Quarter: 2023Q2

REPORT INFORMATION
  Report Type: Spontaneous
  Country: US (occurrence: US)
  Receive Date: 20230623
  Receipt Date: 20230629
  Transmission Date: 20230721
  Serious: No
  Sender: FDA-Public Use
  Company Number: US-PFIZER INC-202300227136

PATIENT
  Age: 86 Year
  Sex: Female
  Weight: 70.31 kg

DRUGS (1)
  1. IBRANCE [Suspect]
     Active Substance: PALBOCICLIB
     Indication: Hormone receptor positive HER2 negative breast cancer
     Dosage: 75 MG, CYCLIC (75 MG 21 DAYS ON AND 2 WEEKS OFF)
     Route: 048

REACTIONS (1)
  - Laboratory test abnormal [Unknown]
